FAERS Safety Report 7623944-6 (Version None)
Quarter: 2011Q3

REPORT INFORMATION
  Report Type: 
  Country: None (occurrence: None)
  Receive Date: 20110720
  Receipt Date: 20110714
  Transmission Date: 20111222
  Serious: Yes (Hospitalization)
  Sender: FDA-Public Use
  Company Number: ES-EISAI INC-E2090-01693-SOL-ES

PATIENT
  Age: 23 Year
  Sex: Male

DRUGS (3)
  1. DEPAKENE [Interacting]
     Indication: EPILEPSY
     Route: 048
     Dates: start: 20110502, end: 20110509
  2. TRILEPTAL [Interacting]
     Indication: EPILEPSY
     Route: 048
     Dates: start: 20060401
  3. ZONEGRAN [Suspect]
     Indication: EPILEPSY
     Route: 048
     Dates: start: 20110428

REACTIONS (2)
  - DRUG INTERACTION [None]
  - ENCEPHALOPATHY [None]
